FAERS Safety Report 9467814 (Version 1)
Quarter: 2013Q3

REPORT INFORMATION
  Report Type: Report from Study
  Country: JP (occurrence: JP)
  Receive Date: 20130821
  Receipt Date: 20130821
  Transmission Date: 20140515
  Serious: Yes (Other)
  Sender: FDA-Public Use
  Company Number: JP-ROCHE-1263971

PATIENT
  Sex: 0

DRUGS (1)
  1. OSELTAMIVIR [Suspect]
     Indication: PRODUCT USED FOR UNKNOWN INDICATION
     Route: 064

REACTIONS (3)
  - Sepsis [Unknown]
  - Transient tachypnoea of the newborn [Unknown]
  - Maternal exposure timing unspecified [Unknown]
